FAERS Safety Report 8179453-1 (Version None)
Quarter: 2012Q1

REPORT INFORMATION
  Report Type: 
  Country: None (occurrence: None)
  Receive Date: 20120302
  Receipt Date: 20120227
  Transmission Date: 20120608
  Serious: Yes (Death, Other)
  Sender: FDA-Public Use
  Company Number: CHPA2012US003902

PATIENT
  Age: 38 Year
  Sex: Female

DRUGS (4)
  1. QUININE SULFATE [Suspect]
     Dosage: UNK, UNK
     Route: 048
  2. QUETIAPINE [Suspect]
     Dosage: UNK, UNK
     Route: 048
  3. ACETAMINOPHEN, DIPHENHYDRAMINE CITRATE [Suspect]
     Dosage: UNK, UNK
     Route: 048
  4. CARPROFEN [Suspect]
     Dosage: UNK, UNK
     Route: 048

REACTIONS (28)
  - COMPLETED SUICIDE [None]
  - PCO2 INCREASED [None]
  - VISCERAL CONGESTION [None]
  - BLOOD PH DECREASED [None]
  - PLATELET COUNT INCREASED [None]
  - VENTRICULAR TACHYCARDIA [None]
  - PULSE ABSENT [None]
  - CARDIAC HYPERTROPHY [None]
  - WHITE BLOOD CELL COUNT INCREASED [None]
  - HYPOTENSION [None]
  - VENTRICULAR FIBRILLATION [None]
  - PULMONARY CONGESTION [None]
  - OPIATES [None]
  - ELECTROCARDIOGRAM QRS COMPLEX PROLONGED [None]
  - CONVULSION [None]
  - UNRESPONSIVE TO STIMULI [None]
  - PO2 INCREASED [None]
  - DRUG SCREEN POSITIVE [None]
  - CARDIOVERSION [None]
  - COMA SCALE ABNORMAL [None]
  - PUPIL FIXED [None]
  - HAEMATOCRIT DECREASED [None]
  - SINUS TACHYCARDIA [None]
  - BUNDLE BRANCH BLOCK LEFT [None]
  - TOXICITY TO VARIOUS AGENTS [None]
  - RHONCHI [None]
  - ELECTROCARDIOGRAM QT PROLONGED [None]
  - AORTIC VALVE STENOSIS [None]
